FAERS Safety Report 22075184 (Version 3)
Quarter: 2023Q2

REPORT INFORMATION
  Report Type: Spontaneous
  Country: US (occurrence: US)
  Receive Date: 20230308
  Receipt Date: 20230531
  Transmission Date: 20230722
  Serious: No
  Sender: FDA-Public Use
  Company Number: US-BIOGEN-2023BI01191836

PATIENT
  Sex: Female

DRUGS (1)
  1. TYSABRI [Suspect]
     Active Substance: NATALIZUMAB
     Indication: Multiple sclerosis
     Route: 050
     Dates: start: 20210630, end: 20221102

REACTIONS (7)
  - Respiratory tract infection bacterial [Unknown]
  - Vision blurred [Unknown]
  - Contusion [Unknown]
  - Generalised oedema [Unknown]
  - General physical health deterioration [Unknown]
  - Visual impairment [Unknown]
  - Anger [Unknown]
